FAERS Safety Report 11375878 (Version 1)
Quarter: 2015Q3

REPORT INFORMATION
  Report Type: Spontaneous
  Country: US (occurrence: US)
  Receive Date: 20150813
  Receipt Date: 20150813
  Transmission Date: 20151125
  Serious: No
  Sender: FDA-Public Use
  Company Number: US-ENDO PHARMACEUTICALS INC.-2015-002141

PATIENT
  Sex: Male
  Weight: 74.91 kg

DRUGS (1)
  1. XIAFLEX [Suspect]
     Active Substance: COLLAGENASE CLOSTRIDIUM HISTOLYTICUM
     Indication: PEYRONIE^S DISEASE
     Route: 065
     Dates: start: 2015, end: 2015

REACTIONS (3)
  - Penile haematoma [Recovering/Resolving]
  - Penile blister [Recovering/Resolving]
  - Penile contusion [Recovering/Resolving]

NARRATIVE: CASE EVENT DATE: 2015
